FAERS Safety Report 18757434 (Version 1)
Quarter: 2021Q1

REPORT INFORMATION
  Report Type: Spontaneous
  Country: US (occurrence: US)
  Receive Date: 20210119
  Receipt Date: 20210119
  Transmission Date: 20210419
  Serious: Yes (Death, Other)
  Sender: FDA-Public Use
  Company Number: US-009507513-2101USA008329

PATIENT

DRUGS (2)
  1. JANUVIA [Suspect]
     Active Substance: SITAGLIPTIN PHOSPHATE
     Dosage: UNK
     Route: 048
     Dates: start: 20090203, end: 20110114
  2. BYETTA [Suspect]
     Active Substance: EXENATIDE
     Dosage: UNK
     Dates: start: 20110602, end: 20121215

REACTIONS (2)
  - Pancreatic carcinoma [Unknown]
  - Death [Fatal]

NARRATIVE: CASE EVENT DATE: 201305
